FAERS Safety Report 4591387-8 (Version None)
Quarter: 2005Q1

REPORT INFORMATION
  Report Type: 
  Country: None (occurrence: None)
  Receive Date: 20050223
  Receipt Date: 20050223
  Transmission Date: 20050727
  Serious: No
  Sender: FDA-Public Use
  Company Number: None

PATIENT
  Sex: Female
  Weight: 67.586 kg

DRUGS (1)
  1. GABAPENTIN [Suspect]
     Indication: QUADRIPLEGIA
     Dosage: 2 CAP  3 TIMES DAILY PO
     Route: 048
     Dates: start: 20050128

REACTIONS (4)
  - ABDOMINAL RIGIDITY [None]
  - FOREIGN BODY TRAUMA [None]
  - MUSCLE SPASMS [None]
  - PHARMACEUTICAL PRODUCT COMPLAINT [None]
